FAERS Safety Report 7877099-3 (Version None)
Quarter: 2011Q4

REPORT INFORMATION
  Report Type: 
  Country: None (occurrence: None)
  Receive Date: 20111031
  Receipt Date: 20111012
  Transmission Date: 20120403
  Serious: No
  Sender: FDA-Public Use
  Company Number: US-ABBOTT-11P-163-0864301-00

PATIENT
  Sex: Male
  Weight: 56.75 kg

DRUGS (2)
  1. CREON [Suspect]
     Indication: PANCREATIC INSUFFICIENCY
     Dosage: 2 WITH MEALS AND 1 WITH SNACK
  2. ENSURE CLINICAL STRENGTH [Suspect]
     Indication: MEDICAL DIET
     Dosage: 2 CANS DAILY

REACTIONS (1)
  - DIARRHOEA [None]
